FAERS Safety Report 7604256-3 (Version None)
Quarter: 2011Q3

REPORT INFORMATION
  Report Type: 
  Country: None (occurrence: None)
  Receive Date: 20110712
  Receipt Date: 20110706
  Transmission Date: 20111222
  Serious: Yes (Other)
  Sender: FDA-Public Use
  Company Number: US-PFIZER INC-2011113919

PATIENT
  Sex: Male

DRUGS (1)
  1. SUTENT [Suspect]
     Indication: METASTATIC RENAL CELL CARCINOMA
     Dosage: 50 MG, FOR 28 DAYS EVERY 42 DAYS
     Route: 048
     Dates: start: 20110517, end: 20110603

REACTIONS (2)
  - HYPERTENSION [None]
  - CYANOSIS [None]
